FAERS Safety Report 8384860-8 (Version None)
Quarter: 2012Q2

REPORT INFORMATION
  Report Type: 
  Country: None (occurrence: None)
  Receive Date: 20120524
  Receipt Date: 20120516
  Transmission Date: 20120825
  Serious: Yes (Death)
  Sender: FDA-Public Use
  Company Number: JP-CELGENEUS-087-50794-12020708

PATIENT
  Age: 67 Year
  Sex: Male
  Weight: 61 kg

DRUGS (14)
  1. GRANISETRON HYDROCHLORIDE [Concomitant]
     Route: 065
     Dates: start: 20110124, end: 20120124
  2. MUCOSOLVAN [Concomitant]
     Route: 065
     Dates: start: 20110124, end: 20120124
  3. LASIX [Concomitant]
     Route: 065
     Dates: start: 20110124, end: 20120124
  4. ALLOPURINOL [Concomitant]
     Route: 065
     Dates: start: 20110124, end: 20120124
  5. DIGOXIN [Concomitant]
     Route: 065
     Dates: start: 20110124, end: 20120124
  6. BOSMIN [Concomitant]
     Route: 065
     Dates: start: 20110125, end: 20120125
  7. ASPIRIN [Concomitant]
     Route: 065
     Dates: end: 20120402
  8. URALYT-U [Concomitant]
     Route: 065
     Dates: start: 20110124, end: 20120124
  9. WARFARIN POTASSIUM [Concomitant]
     Route: 065
     Dates: start: 20110124, end: 20120124
  10. ZOLPIDEM [Concomitant]
     Route: 065
     Dates: start: 20110124, end: 20120124
  11. ALDACTONE [Concomitant]
     Route: 065
     Dates: start: 20110124, end: 20120124
  12. MEDICON [Concomitant]
     Route: 065
     Dates: start: 20110124, end: 20120124
  13. VIDAZA [Suspect]
     Dosage: 100 MILLIGRAM
     Route: 041
     Dates: start: 20120124, end: 20120124
  14. MIROBECT [Concomitant]
     Route: 065
     Dates: start: 20110124, end: 20120124

REACTIONS (11)
  - RESPIRATORY ARREST [None]
  - WHITE BLOOD CELL COUNT INCREASED [None]
  - BLOOD BILIRUBIN INCREASED [None]
  - ASPARTATE AMINOTRANSFERASE INCREASED [None]
  - ALANINE AMINOTRANSFERASE INCREASED [None]
  - BLOOD UREA INCREASED [None]
  - BILIRUBIN CONJUGATED INCREASED [None]
  - BLOOD CREATININE INCREASED [None]
  - BLOOD POTASSIUM INCREASED [None]
  - BLOOD LACTATE DEHYDROGENASE INCREASED [None]
  - BLOOD CREATINE PHOSPHOKINASE INCREASED [None]
